FAERS Safety Report 5926315-3 (Version None)
Quarter: 2008Q4

REPORT INFORMATION
  Report Type: 
  Country: None (occurrence: None)
  Receive Date: 20081017
  Receipt Date: 20081014
  Transmission Date: 20090506
  Serious: Yes (Death, Other)
  Sender: FDA-Public Use
  Company Number: 2008SP020825

PATIENT
  Age: 69 Year
  Sex: Male

DRUGS (4)
  1. INTRON A [Suspect]
     Indication: HEPATIC NEOPLASM MALIGNANT
     Dosage: 3 MIU;TIW;IA, 3 MIU;TIW;IA, 3 MIU;TIW;IA
     Route: 014
     Dates: start: 20080507, end: 20080602
  2. INTRON A [Suspect]
     Indication: HEPATIC NEOPLASM MALIGNANT
     Dosage: 3 MIU;TIW;IA, 3 MIU;TIW;IA, 3 MIU;TIW;IA
     Route: 014
     Dates: start: 20080606, end: 20080702
  3. INTRON A [Suspect]
     Indication: HEPATIC NEOPLASM MALIGNANT
     Dosage: 3 MIU;TIW;IA, 3 MIU;TIW;IA, 3 MIU;TIW;IA
     Route: 014
     Dates: start: 20080709, end: 20080801
  4. FLUOROURACIL [Concomitant]

REACTIONS (7)
  - CONDITION AGGRAVATED [None]
  - DELIRIUM [None]
  - ESCHERICHIA INFECTION [None]
  - INTERSTITIAL LUNG DISEASE [None]
  - PNEUMONIA [None]
  - PULMONARY FIBROSIS [None]
  - SEPSIS [None]
